FAERS Safety Report 12812393 (Version 3)
Quarter: 2017Q1

REPORT INFORMATION
  Report Type: Spontaneous
  Country: US (occurrence: US)
  Receive Date: 20161005
  Receipt Date: 20170322
  Transmission Date: 20170428
  Serious: Yes (Hospitalization)
  Sender: FDA-Public Use
  Company Number: US-PFIZER INC-2016460816

PATIENT
  Age: 53 Year
  Sex: Female
  Weight: 86 kg

DRUGS (3)
  1. RAPAMUNE [Suspect]
     Active Substance: SIROLIMUS
     Dosage: 2 MG, UNSPECIFIED FREQUENCY
  2. RAPAMUNE [Suspect]
     Active Substance: SIROLIMUS
     Dosage: 1 MG, UNSPECIFIED FREQUENCY
  3. RAPAMUNE [Suspect]
     Active Substance: SIROLIMUS
     Indication: AUTOIMMUNE HEPATITIS
     Dosage: 1 MG, ONCE A DAY (IN THE MORNING)
     Dates: start: 200807

REACTIONS (3)
  - Hepatic failure [Recovered/Resolved]
  - Hepatic enzyme increased [Unknown]
  - Product use issue [Unknown]

NARRATIVE: CASE EVENT DATE: 200807
